FAERS Safety Report 9971631 (Version 1)
Quarter: 2014Q1

REPORT INFORMATION
  Report Type: Spontaneous
  Country: US (occurrence: None)
  Receive Date: 20140305
  Receipt Date: 20140305
  Transmission Date: 20141002
  Serious: No
  Sender: FDA-Public Use
  Company Number: None

PATIENT
  Age: 52 Year
  Sex: Female
  Weight: 68.04 kg

DRUGS (1)
  1. SAVELLA [Suspect]
     Indication: FIBROMYALGIA
     Dosage: 2-WEEK TITRATION PACK
     Dates: start: 20140303, end: 20140303

REACTIONS (5)
  - Headache [None]
  - Dizziness [None]
  - Insomnia [None]
  - Vomiting [None]
  - Dry mouth [None]
